FAERS Safety Report 12651521 (Version 1)
Quarter: 2016Q3

REPORT INFORMATION
  Report Type: Spontaneous
  Country: FR (occurrence: FR)
  Receive Date: 20160815
  Receipt Date: 20160815
  Transmission Date: 20161109
  Serious: Yes (Death)
  Sender: FDA-Public Use
  Company Number: FR-PFIZER INC-2016382620

PATIENT
  Age: 73 Year
  Sex: Male

DRUGS (14)
  1. RITUXIMAB [Suspect]
     Active Substance: RITUXIMAB
     Dosage: 800 MG, UNK
     Dates: start: 20151202, end: 20151202
  2. INEXIUM /01479302/ [Concomitant]
     Active Substance: ESOMEPRAZOLE MAGNESIUM
     Dosage: 20 MG, DAILY
     Route: 048
  3. HUMALOG [Concomitant]
     Active Substance: INSULIN LISPRO
     Dosage: 84 IU DAILY (28 IU MORNING, 36 IU NOON AND 20 IU EVENING)
     Route: 058
  4. RITUXIMAB [Suspect]
     Active Substance: RITUXIMAB
     Dosage: 800 MG, UNK
     Dates: start: 20151209, end: 20151209
  5. RITUXIMAB [Suspect]
     Active Substance: RITUXIMAB
     Dosage: 800 MG, UNK
     Dates: start: 20151228, end: 20151228
  6. ZESTORETIC [Concomitant]
     Active Substance: HYDROCHLOROTHIAZIDE\LISINOPRIL
     Dosage: 1 DF, DAILY
     Route: 048
  7. MONO-TILDIEM [Concomitant]
     Active Substance: DILTIAZEM HYDROCHLORIDE
     Dosage: 200 MG, DAILY
     Route: 048
  8. DOXYCYCLINE. [Concomitant]
     Active Substance: DOXYCYCLINE
     Dosage: 200 MG, DAILY
     Route: 048
  9. BACTRIM [Concomitant]
     Active Substance: SULFAMETHOXAZOLE\TRIMETHOPRIM
  10. RITUXIMAB [Suspect]
     Active Substance: RITUXIMAB
     Dosage: 800 MG, UNK
     Dates: start: 20151217, end: 20151217
  11. CORTANCYL [Suspect]
     Active Substance: PREDNISONE
     Dosage: 15 MG, DAILY
     Route: 048
  12. SOLU-MEDROL [Suspect]
     Active Substance: METHYLPREDNISOLONE SODIUM SUCCINATE
     Dosage: 250 MG, ON 04NOV2015, 05NOV2015, 06NOV2015
     Route: 040
     Dates: start: 20151104, end: 20151106
  13. LEVEMIR [Concomitant]
     Active Substance: INSULIN DETEMIR
     Dosage: 22 IU, DAILY
     Route: 058
  14. CORTANCYL [Suspect]
     Active Substance: PREDNISONE
     Dosage: 90 MG WITH PROGRESSIVE DOSAGE DECREASE
     Route: 048

REACTIONS (3)
  - Hepatitis B [Fatal]
  - Multiple organ dysfunction syndrome [Fatal]
  - Hepatitis acute [Fatal]

NARRATIVE: CASE EVENT DATE: 201604
